FAERS Safety Report 8038581-1 (Version None)
Quarter: 2012Q1

REPORT INFORMATION
  Report Type: 
  Country: None (occurrence: None)
  Receive Date: 20120111
  Receipt Date: 20111204
  Transmission Date: 20120608
  Serious: No
  Sender: FDA-Public Use
  Company Number: US-AMGEN-USASP2011064343

PATIENT
  Sex: Female

DRUGS (1)
  1. ENBREL [Suspect]
     Indication: PSORIASIS
     Dosage: UNK
     Dates: start: 20110101, end: 20110501

REACTIONS (7)
  - DECREASED APPETITE [None]
  - MALNUTRITION [None]
  - GASTRIC ULCER [None]
  - PSORIASIS [None]
  - DEPRESSION [None]
  - LOSS OF EMPLOYMENT [None]
  - VOMITING [None]
